FAERS Safety Report 13645569 (Version 1)
Quarter: 2017Q2

REPORT INFORMATION
  Report Type: Report from Study
  Country: None (occurrence: BR)
  Receive Date: 20170613
  Receipt Date: 20170613
  Transmission Date: 20170830
  Serious: Yes (Hospitalization)
  Sender: FDA-Public Use
  Company Number: BR-ABBVIE-17K-020-2003244-00

PATIENT
  Sex: Female
  Weight: 54 kg

DRUGS (7)
  1. HUMIRA [Suspect]
     Active Substance: ADALIMUMAB
     Indication: CROHN^S DISEASE
     Dosage: WEEK 0
     Route: 058
     Dates: start: 2008, end: 2008
  2. HUMIRA [Suspect]
     Active Substance: ADALIMUMAB
     Dosage: WEEK 2
     Route: 058
  3. HUMIRA [Suspect]
     Active Substance: ADALIMUMAB
     Route: 058
  4. HUMIRA [Suspect]
     Active Substance: ADALIMUMAB
     Route: 058
  5. AZATHIOPRINE. [Concomitant]
     Active Substance: AZATHIOPRINE
     Indication: PRODUCT USED FOR UNKNOWN INDICATION
  6. HUMIRA [Suspect]
     Active Substance: ADALIMUMAB
     Route: 058
  7. HUMIRA [Suspect]
     Active Substance: ADALIMUMAB
     Route: 058
     Dates: end: 2015

REACTIONS (20)
  - Gastrointestinal inflammation [Not Recovered/Not Resolved]
  - Diarrhoea [Recovered/Resolved]
  - Abdominal distension [Recovered/Resolved]
  - Abdominal pain upper [Recovered/Resolved]
  - Generalised erythema [Recovered/Resolved]
  - Nausea [Recovered/Resolved]
  - Syncope [Recovered/Resolved]
  - Diarrhoea [Not Recovered/Not Resolved]
  - Drug ineffective [Recovered/Resolved]
  - Weight decreased [Not Recovered/Not Resolved]
  - Pruritus generalised [Recovered/Resolved]
  - Dermatitis allergic [Recovered/Resolved]
  - Abnormal faeces [Recovered/Resolved]
  - Weight decreased [Recovered/Resolved]
  - Abdominal pain upper [Recovered/Resolved]
  - Abnormal faeces [Not Recovered/Not Resolved]
  - Abdominal pain upper [Not Recovered/Not Resolved]
  - Nausea [Recovered/Resolved]
  - Nausea [Not Recovered/Not Resolved]
  - Haematochezia [Recovered/Resolved]

NARRATIVE: CASE EVENT DATE: 2012
